FAERS Safety Report 8186258-4 (Version None)
Quarter: 2012Q1

REPORT INFORMATION
  Report Type: 
  Country: None (occurrence: None)
  Receive Date: 20120301
  Receipt Date: 20120217
  Transmission Date: 20120608
  Serious: Yes (Other)
  Sender: FDA-Public Use
  Company Number: EU-2011-10243

PATIENT
  Sex: Female
  Weight: 45 kg

DRUGS (22)
  1. SPIRIVA [Concomitant]
  2. SODIUM CHLORIDE 0.9% [Concomitant]
  3. AMIODIPINE (AMIODIPINE) [Concomitant]
  4. UNACID PD (SULTAMICILLIN TOSILATE) [Concomitant]
  5. ATACAND [Concomitant]
  6. GABENTIN (GABAPENTIN) [Concomitant]
  7. FOSTER (BECLOMETASONE DIPROPIONATE, FORMOTEROL FUMARATE) [Concomitant]
  8. FRAGMIN [Concomitant]
  9. NOVALGIN (METAMIZOLE SODIUM) [Concomitant]
  10. SAMSCA [Suspect]
     Indication: INAPPROPRIATE ANTIDIURETIC HORMONE SECRETION
     Dosage: 7.5 MG MILLIGRAM(S), QOD, ORAL
     Route: 048
     Dates: start: 20110421, end: 20110426
  11. ARIEVERT (CINNARIZINE, DIMENHYDRINATE) [Concomitant]
  12. RINGER LACTAT (CALCIUM CHLORIDE ANHYDROUS, POTASSIUM CHLORIDE, SODIUM [Concomitant]
  13. TRAMADOL HCL [Concomitant]
  14. NOVAMINSULFON (NOVAMINSULFON) [Concomitant]
  15. ASPIRIN [Concomitant]
  16. LEVOTHYROXINE SODIUM [Concomitant]
  17. THEOPHYLLINE [Concomitant]
  18. PANTOPRAZOLE [Concomitant]
  19. FLUTICASONE PROPIONATE/SALMETEROL [Concomitant]
  20. CODEINE SULFATE [Concomitant]
  21. EBRANTIL (URAPIDIL) [Concomitant]
  22. SALINE (SALINE) [Concomitant]

REACTIONS (9)
  - HYPERTENSIVE CRISIS [None]
  - WRONG TECHNIQUE IN DRUG USAGE PROCESS [None]
  - TEARFULNESS [None]
  - FALL [None]
  - RIB FRACTURE [None]
  - HYPERVENTILATION [None]
  - DEPRESSED MOOD [None]
  - ACUTE MYOCARDIAL INFARCTION [None]
  - URINARY TRACT INFECTION [None]
